FAERS Safety Report 15625601 (Version 2)
Quarter: 2018Q4

REPORT INFORMATION
  Report Type: Report from Study
  Country: LB (occurrence: LB)
  Receive Date: 20181116
  Receipt Date: 20181128
  Transmission Date: 20190205
  Serious: Yes (Hospitalization, Other)
  Sender: FDA-Public Use
  Company Number: PHHY2018LB152521

PATIENT
  Age: 51 Year
  Sex: Female

DRUGS (1)
  1. TYKERB [Suspect]
     Active Substance: LAPATINIB DITOSYLATE
     Indication: BREAST CANCER
     Dosage: 250 MG, (5X/DAY) (START DATE: APPROXIMATELY 6 MONTHS AGO)
     Route: 048
     Dates: end: 20181029

REACTIONS (3)
  - Renal pain [Recovered/Resolved]
  - Pain in extremity [Recovered/Resolved]
  - Metastases to bone [Unknown]

NARRATIVE: CASE EVENT DATE: 20181029
